FAERS Safety Report 8232826-0 (Version None)
Quarter: 2012Q1

REPORT INFORMATION
  Report Type: 
  Country: None (occurrence: None)
  Receive Date: 20120323
  Receipt Date: 20120315
  Transmission Date: 20120608
  Serious: Yes (Other)
  Sender: FDA-Public Use
  Company Number: US-ASTRAZENECA-2010SE56707

PATIENT
  Age: 53 Year
  Sex: Female
  Weight: 68 kg

DRUGS (2)
  1. SEROQUEL [Suspect]
     Indication: SLEEP DISORDER
     Route: 048
     Dates: start: 20100101
  2. NEXIUM [Suspect]
     Indication: GASTROOESOPHAGEAL REFLUX DISEASE
     Route: 048

REACTIONS (8)
  - GRAFT COMPLICATION [None]
  - CHRONIC OBSTRUCTIVE PULMONARY DISEASE [None]
  - OCULAR NEOPLASM [None]
  - THROAT CANCER [None]
  - WEIGHT INCREASED [None]
  - DRUG DOSE OMISSION [None]
  - LUNG NEOPLASM [None]
  - NERVOUSNESS [None]
